FAERS Safety Report 5940581-X (Version None)
Quarter: 2008Q4

REPORT INFORMATION
  Report Type: 
  Country: None (occurrence: None)
  Receive Date: 20081104
  Receipt Date: 20081022
  Transmission Date: 20090506
  Serious: Yes (Death, Other)
  Sender: FDA-Public Use
  Company Number: JP-ROCHE-594030

PATIENT
  Age: 59 Year
  Sex: Male

DRUGS (8)
  1. ROCEPHIN [Suspect]
     Indication: OBLITERATIVE BRONCHIOLITIS
     Route: 042
  2. BACTRIM [Suspect]
     Indication: OBLITERATIVE BRONCHIOLITIS
     Route: 065
  3. METHYLPREDNISOLONE SODIUM SUCCINATE [Concomitant]
     Route: 041
  4. VALGANCICLOVIR HCL [Concomitant]
     Route: 048
  5. NEUPOGEN [Concomitant]
     Dosage: REPORTED AS OTHER AGENTS RELATING TO BLOOD AND BODY FLUIDS
  6. ANTIBIOTIC NOS [Concomitant]
     Dosage: REPORTED AS OTHER ANTIBIOTIC PREPARATIONS (INCLUING MIXED ANTIBIOTIC)
  7. MEROPEN [Concomitant]
     Route: 041
  8. ISEPAMICIN SULFATE [Concomitant]

REACTIONS (4)
  - BONE MARROW FAILURE [None]
  - NEUTROPENIA [None]
  - PNEUMOCYSTIS JIROVECI PNEUMONIA [None]
  - PNEUMONIA CYTOMEGALOVIRAL [None]
